FAERS Safety Report 20853739 (Version 2)
Quarter: 2022Q2

REPORT INFORMATION
  Report Type: Spontaneous
  Country: US (occurrence: US)
  Receive Date: 20220520
  Receipt Date: 20220601
  Transmission Date: 20220721
  Serious: Yes (Other)
  Sender: FDA-Public Use
  Company Number: US-ASTELLAS-2022US018380

PATIENT
  Age: 4 Year
  Sex: Female

DRUGS (3)
  1. PROGRAF [Suspect]
     Active Substance: TACROLIMUS
     Indication: Nephrotic syndrome
     Dosage: 1 MG, TWICE DAILY (LOW DOSE)
     Route: 048
     Dates: start: 20190820, end: 20201022
  2. PROGRAF [Suspect]
     Active Substance: TACROLIMUS
     Dosage: 1.5 MG, TWICE DAILY (INCREASE IN DOSAGE)
     Route: 048
     Dates: start: 20201022, end: 20201127
  3. VITAMIN D3 [Concomitant]
     Active Substance: CHOLECALCIFEROL
     Indication: Product used for unknown indication
     Route: 065

REACTIONS (3)
  - Dystonia [Recovered/Resolved]
  - Drug effective for unapproved indication [Unknown]
  - Off label use [Unknown]

NARRATIVE: CASE EVENT DATE: 20190820
